FAERS Safety Report 25110284 (Version 1)
Quarter: 2025Q1

REPORT INFORMATION
  Report Type: Spontaneous
  Country: CA (occurrence: CA)
  Receive Date: 20250324
  Receipt Date: 20250324
  Transmission Date: 20250409
  Serious: Yes (Other)
  Sender: APOTEX
  Company Number: CA-APOTEX-2024AP017360

PATIENT
  Age: 7 Year
  Sex: Female

DRUGS (2)
  1. CLOBAZAM [Suspect]
     Active Substance: CLOBAZAM
     Indication: Epilepsy
     Dosage: 5 MILLIGRAM, BID (HALF TABLET)
     Route: 065
     Dates: start: 20240918, end: 20241101
  2. CLOBAZAM [Suspect]
     Active Substance: CLOBAZAM
     Dosage: 2.5 MILLIGRAM, BID
     Route: 048

REACTIONS (15)
  - Dysuria [Recovered/Resolved]
  - Product substitution issue [Unknown]
  - Coordination abnormal [Recovered/Resolved]
  - Mood swings [Recovered/Resolved]
  - Fear [Recovering/Resolving]
  - Nightmare [Recovered/Resolved]
  - Restlessness [Recovered/Resolved]
  - Confusional state [Recovered/Resolved]
  - Hallucination [Recovered/Resolved]
  - Irritability [Recovered/Resolved]
  - Pyrexia [Recovered/Resolved]
  - Anxiety [Recovered/Resolved]
  - Rash [Recovered/Resolved]
  - Insomnia [Recovered/Resolved]
  - Drooling [Recovered/Resolved]

NARRATIVE: CASE EVENT DATE: 20240101
